FAERS Safety Report 7989859-9 (Version None)
Quarter: 2011Q4

REPORT INFORMATION
  Report Type: 
  Country: None (occurrence: None)
  Receive Date: 20111215
  Receipt Date: 20100615
  Transmission Date: 20120403
  Serious: Yes (Hospitalization)
  Sender: FDA-Public Use
  Company Number: OTH-PAT-2010002

PATIENT
  Age: 4 Year
  Sex: Female

DRUGS (7)
  1. CYSTADANE [Suspect]
     Indication: VITAMIN B12 DEFICIENCY
     Dosage: 15 G EVERY DAY ORAL, 6 G EVERY DAY ORAL
     Route: 048
     Dates: start: 20070928
  2. POLYETHYLENE GLYCOL 3350 (MIRALAX) [Concomitant]
  3. OXYBUTYNIN [Concomitant]
  4. GUANFACINE HYDROCHLORIDE [Concomitant]
  5. LORATADINE AND AMPHETAMINE/DEXTROAMPHETAMINE (ADDERALL) [Concomitant]
  6. HYDROXOCOBALAMIN [Concomitant]
  7. NITROFURANTOIN (FURADANTINE) [Concomitant]

REACTIONS (3)
  - URINE COLOUR ABNORMAL [None]
  - KIDNEY INFECTION [None]
  - EPISTAXIS [None]
